FAERS Safety Report 6276351-5 (Version None)
Quarter: 2009Q3

REPORT INFORMATION
  Report Type: 
  Country: None (occurrence: None)
  Receive Date: 20090722
  Receipt Date: 20090716
  Transmission Date: 20100115
  Serious: Yes (Death, Hospitalization)
  Sender: FDA-Public Use
  Company Number: DE-CELGENEUS-062-C5013-09042483

PATIENT
  Sex: Male
  Weight: 90 kg

DRUGS (7)
  1. CC-5013 [Suspect]
     Route: 048
     Dates: start: 20090414, end: 20090501
  2. ALLOPURINOL [Concomitant]
     Indication: PROPHYLAXIS
     Route: 048
     Dates: start: 20090411
  3. ENALAPRIL MALEATE [Concomitant]
     Route: 048
     Dates: start: 20090421, end: 20090505
  4. FUROSEMIDE [Concomitant]
     Route: 048
     Dates: start: 20090421, end: 20090505
  5. PARACODEINE [Concomitant]
     Indication: COUGH
     Route: 048
     Dates: start: 20090421, end: 20090505
  6. SYMBICORT [Concomitant]
     Dosage: 2X1
     Route: 055
     Dates: start: 20090421, end: 20090505
  7. APSOMOL [Concomitant]
     Route: 055
     Dates: start: 20090421, end: 20090505

REACTIONS (2)
  - PNEUMONIA [None]
  - SEPSIS [None]
